FAERS Safety Report 8346894-9 (Version None)
Quarter: 2012Q2

REPORT INFORMATION
  Report Type: 
  Country: None (occurrence: None)
  Receive Date: 20120509
  Receipt Date: 20120425
  Transmission Date: 20120825
  Serious: Yes (Other)
  Sender: FDA-Public Use
  Company Number: US-UCBSA-055840

PATIENT
  Age: 41 Year
  Sex: Male

DRUGS (13)
  1. BLEOMYCIN SULFATE [Concomitant]
     Dosage: DOSE:15 MG/M2
  2. CYCLOPHOSPHAMIDE [Concomitant]
     Dosage: DOSE:600 MG/M2
  3. FERROUS SULFATE TAB [Concomitant]
     Dosage: EVERY MORNING
     Route: 048
  4. LEUCOVORIN CALCIUM [Concomitant]
     Dosage: UNKNOWN DOSE
  5. LEVOTHYROXINE SODIUM [Concomitant]
     Dosage: EVERY MORNING
     Route: 048
  6. ASPIRIN [Concomitant]
     Dosage: UNKNOWN DOSE
  7. ACYCLOVIR [Concomitant]
     Route: 048
  8. BACLOFEN [Concomitant]
     Dosage: EVERY MORNING
     Route: 048
  9. OMEPRAZOLE [Suspect]
     Dosage: DOSE:20 MG GHS
     Route: 048
  10. SENNA-MINT WAF [Concomitant]
     Dosage: QHS
     Route: 048
  11. METHOTREXATE [Interacting]
     Indication: BONE SARCOMA
     Dosage: DOSE:12 GM/M2
  12. DOCUSATE SODIUM [Concomitant]
     Route: 048
  13. DACTINOMYCIN [Concomitant]
     Dosage: DOSE:0.6 MG/M2

REACTIONS (3)
  - DRUG LEVEL INCREASED [None]
  - DRUG CLEARANCE DECREASED [None]
  - DRUG INTERACTION [None]
